FAERS Safety Report 14014418 (Version 1)
Quarter: 2017Q3

REPORT INFORMATION
  Report Type: Spontaneous
  Country: JP (occurrence: JP)
  Receive Date: 20170927
  Receipt Date: 20170927
  Transmission Date: 20171128
  Serious: Yes (Death, Life-Threatening, Other)
  Sender: FDA-Public Use
  Company Number: JP-009507513-1709JPN002374J

PATIENT
  Age: 71 Year
  Sex: Female

DRUGS (2)
  1. TEMODAL [Suspect]
     Active Substance: TEMOZOLOMIDE
     Indication: ANAPLASTIC ASTROCYTOMA
     Dosage: 100 MG, UNK
     Route: 048
     Dates: start: 20170629, end: 20170714
  2. PREDONINE [Suspect]
     Active Substance: PREDNISOLONE
     Indication: DRUG ERUPTION
     Dosage: 20 MG, UNK
     Route: 048
     Dates: start: 20170718, end: 2017

REACTIONS (2)
  - Drug eruption [Unknown]
  - Pneumocystis jirovecii pneumonia [Fatal]

NARRATIVE: CASE EVENT DATE: 20170714
